FAERS Safety Report 9691861 (Version 1)
Quarter: 2013Q4

REPORT INFORMATION
  Report Type: Spontaneous
  Country: CA (occurrence: CA)
  Receive Date: 20131117
  Receipt Date: 20131117
  Transmission Date: 20140711
  Serious: Yes (Hospitalization)
  Sender: FDA-Public Use
  Company Number: CA-ASTRAZENECA-2013SE82927

PATIENT
  Age: 59 Year
  Sex: Male
  Weight: 94.3 kg

DRUGS (5)
  1. CRESTOR [Suspect]
     Indication: BLOOD CHOLESTEROL ABNORMAL
     Route: 048
     Dates: start: 2008, end: 2013
  2. CRESTOR [Suspect]
     Indication: BLOOD CHOLESTEROL ABNORMAL
     Dosage: UNKNOWN, DAILY
     Route: 048
  3. CRESTOR [Suspect]
     Indication: BLOOD CHOLESTEROL ABNORMAL
     Dosage: UNKNOWN, DAILY
     Route: 048
  4. EZATROL [Concomitant]
     Indication: SUPPLEMENTATION THERAPY
  5. LIPITOR [Concomitant]

REACTIONS (12)
  - Arthritis [Unknown]
  - Knee deformity [Recovered/Resolved]
  - Arthritis [Not Recovered/Not Resolved]
  - Irritable bowel syndrome [Unknown]
  - Diarrhoea [Unknown]
  - Impaired work ability [Recovered/Resolved]
  - Blood pressure abnormal [Unknown]
  - Blood cholesterol increased [Unknown]
  - Arthralgia [Not Recovered/Not Resolved]
  - Intentional drug misuse [Unknown]
  - Drug dose omission [Unknown]
  - Drug ineffective [Unknown]
